FAERS Safety Report 6650058-4 (Version None)
Quarter: 2010Q1

REPORT INFORMATION
  Report Type: 
  Country: None (occurrence: None)
  Receive Date: 20100325
  Receipt Date: 20100315
  Transmission Date: 20100710
  Serious: Yes (Hospitalization, Other)
  Sender: FDA-Public Use
  Company Number: JP-JNJFOC-20100302466

PATIENT
  Age: 32 Year
  Sex: Female

DRUGS (3)
  1. REMICADE [Suspect]
     Indication: BEHCET'S SYNDROME
     Route: 042
  2. PREDNISOLONE [Concomitant]
     Indication: BEHCET'S SYNDROME
  3. CYCLOSPORINE [Concomitant]
     Indication: BEHCET'S SYNDROME

REACTIONS (3)
  - ANAPHYLACTIC SHOCK [None]
  - BEHCET'S SYNDROME [None]
  - INFUSION RELATED REACTION [None]
